FAERS Safety Report 6938928-0 (Version None)
Quarter: 2010Q3

REPORT INFORMATION
  Report Type: 
  Country: None (occurrence: None)
  Receive Date: 20100824
  Receipt Date: 20100816
  Transmission Date: 20110219
  Serious: Yes (Hospitalization)
  Sender: FDA-Public Use
  Company Number: B0671240A

PATIENT
  Sex: Female

DRUGS (5)
  1. AMOXICILLIN AND CLAVULANATE POTASSIUM [Suspect]
     Indication: OROPHARYNGEAL PAIN
     Dosage: 1G PER DAY
     Route: 048
     Dates: start: 20100810, end: 20100810
  2. CLENIL [Concomitant]
     Route: 065
     Dates: start: 20100809, end: 20100810
  3. CARDURA [Concomitant]
     Dosage: 2MG PER DAY
     Route: 048
  4. RAMIPRIL [Concomitant]
     Route: 065
  5. SINVACOR [Concomitant]
     Dosage: 10MG PER DAY
     Route: 048

REACTIONS (3)
  - CHEST PAIN [None]
  - RASH PRURITIC [None]
  - VOMITING [None]
